FAERS Safety Report 9438127 (Version 1)
Quarter: 2013Q3

REPORT INFORMATION
  Report Type: Spontaneous
  Country: TR (occurrence: TR)
  Receive Date: 20130802
  Receipt Date: 20130802
  Transmission Date: 20140515
  Serious: Yes (Hospitalization)
  Sender: FDA-Public Use
  Company Number: TR-JNJFOC-20130716650

PATIENT
  Age: 48 Year
  Sex: Male
  Weight: 90 kg

DRUGS (6)
  1. REMICADE [Suspect]
     Indication: ANKYLOSING SPONDYLITIS
     Route: 042
     Dates: start: 20110804, end: 201303
  2. CIPRALEX [Concomitant]
     Route: 065
  3. CONIEL [Concomitant]
     Route: 065
  4. CARDURA [Concomitant]
     Dosage: XL
     Route: 065
  5. KARVEZIDE [Concomitant]
     Dosage: 300 MG/25 MG
     Route: 065
  6. ALL OTHER THERAPEUTICS [Concomitant]
     Dosage: 0,5 MG
     Route: 065

REACTIONS (3)
  - Lymph node tuberculosis [Unknown]
  - Splenic lesion [Unknown]
  - Lymphadenopathy mediastinal [Unknown]
